FAERS Safety Report 4419398-3 (Version None)
Quarter: 2004Q3

REPORT INFORMATION
  Report Type: 
  Country: None (occurrence: None)
  Receive Date: 20040809
  Receipt Date: 20040128
  Transmission Date: 20050211
  Serious: Yes (Hospitalization)
  Sender: FDA-Public Use
  Company Number: US-GLAXOSMITHKLINE-A0495374A

PATIENT
  Age: 55 Year
  Sex: Female

DRUGS (4)
  1. PAXIL [Suspect]
     Indication: DEPRESSION
     Dosage: 30MG PER DAY
     Route: 048
     Dates: start: 20021101, end: 20031104
  2. ALLEGRA [Concomitant]
  3. PAMELOR [Concomitant]
  4. ZIAC [Concomitant]

REACTIONS (2)
  - CHEST DISCOMFORT [None]
  - DIZZINESS [None]
